FAERS Safety Report 11511848 (Version 10)
Quarter: 2016Q2

REPORT INFORMATION
  Report Type: Spontaneous
  Country: CN (occurrence: CN)
  Receive Date: 20150916
  Receipt Date: 20160630
  Transmission Date: 20160815
  Serious: Yes (Death, Hospitalization, Other)
  Sender: FDA-Public Use
  Company Number: CN-009507513-1509CHN007020

PATIENT
  Age: 62 Year
  Sex: Male
  Weight: 60 kg

DRUGS (27)
  1. CALCIUM CARBONATE (+) DEXTROSE (+) MAGNESIUM OXIDE (+) POTASSIUM CHLOR [Concomitant]
     Dosage: 500 ML/CC, QD
     Route: 041
     Dates: start: 20150730, end: 20150801
  2. NIMESULIDE [Concomitant]
     Active Substance: NIMESULIDE
     Dosage: 0.1 G, ONCE
     Route: 048
     Dates: start: 20150729, end: 20150729
  3. POTASSIUM CHLORIDE. [Concomitant]
     Active Substance: POTASSIUM CHLORIDE
     Indication: MINERAL SUPPLEMENTATION
     Dosage: 10%, 10 ML/CC, ONCE
     Route: 041
     Dates: start: 20150725, end: 20150725
  4. MANNITOL. [Concomitant]
     Active Substance: MANNITOL
     Indication: REDUCTION OF INCREASED INTRACRANIAL PRESSURE
     Dosage: TOTAL DAILY DOSE: 250 ML/CC, FREQUENCY: BID; 10%
     Route: 041
     Dates: start: 20150730, end: 20150730
  5. AMIFOSTINE. [Concomitant]
     Active Substance: AMIFOSTINE
     Indication: PROPHYLAXIS
     Dosage: 1.5 G, ONCE
     Route: 041
     Dates: start: 20150730, end: 20150730
  6. ONDANSETRON [Concomitant]
     Active Substance: ONDANSETRON
     Indication: PROPHYLAXIS OF NAUSEA AND VOMITING
     Dosage: 16 MG, ONCE
     Route: 041
     Dates: start: 20150730, end: 20150730
  7. NIMESULIDE [Concomitant]
     Active Substance: NIMESULIDE
     Dosage: 0.1 G, ONCE
     Route: 048
     Dates: start: 20150727, end: 20150727
  8. PIPERACILLIN AND TAZOBACTAM [Concomitant]
     Active Substance: PIPERACILLIN SODIUM\TAZOBACTAM SODIUM
     Indication: INFECTION
     Dosage: TOTAL DAILY DOSE 4.5 G, Q8H
     Route: 041
     Dates: start: 20150725, end: 20150729
  9. POTASSIUM PHOSPHATE, DIBASIC [Concomitant]
     Active Substance: POTASSIUM PHOSPHATE, DIBASIC
     Indication: PARENTERAL NUTRITION
     Dosage: 4 ML/CC, QD
     Route: 041
     Dates: start: 20150730, end: 20150801
  10. NIMESULIDE [Concomitant]
     Active Substance: NIMESULIDE
     Indication: ANTIINFLAMMATORY THERAPY
     Dosage: 0.1 G, ONCE
     Route: 048
     Dates: start: 20150725, end: 20150725
  11. BO ZHI TANG TAI ZHU SHE YE [Concomitant]
     Indication: IMMUNE ENHANCEMENT THERAPY
     Dosage: 10 ML/CC, QD
     Route: 041
     Dates: start: 20150725, end: 20150729
  12. CYANOCOBALAMIN. [Concomitant]
     Active Substance: CYANOCOBALAMIN
     Indication: CHEMOTHERAPY TOXICITY ATTENUATION
     Dosage: 1000 MG, ONCE
     Route: 030
     Dates: start: 20150729, end: 20150729
  13. DEXAMETHASONE. [Concomitant]
     Active Substance: DEXAMETHASONE
     Indication: PROPHYLAXIS OF NAUSEA AND VOMITING
     Dosage: 10 MG, QD
     Route: 041
     Dates: start: 20150730, end: 20150801
  14. LENTINAN [Concomitant]
     Active Substance: LENTINAN
     Indication: IMMUNE ENHANCEMENT THERAPY
     Dosage: TOTAL DAILY DOSE: 1MG, FREQUENCY: BID
     Route: 041
     Dates: start: 20150730, end: 20150730
  15. DIPHENHYDRAMINE. [Concomitant]
     Active Substance: DIPHENHYDRAMINE
     Indication: ANTIALLERGIC THERAPY
     Dosage: 20 MG, ONCE
     Route: 030
     Dates: start: 20150730, end: 20150730
  16. POTASSIUM CHLORIDE. [Concomitant]
     Active Substance: POTASSIUM CHLORIDE
     Dosage: 10%, 10 ML/CC, QD
     Route: 041
     Dates: start: 20150730, end: 20150801
  17. LEVOFLOXACIN (+) SODIUM CHLORIDE [Concomitant]
     Indication: ANTIBIOTIC PROPHYLAXIS
     Dosage: 0.6 G, QD
     Route: 041
     Dates: start: 20150724, end: 20150725
  18. POTASSIUM CHLORIDE. [Concomitant]
     Active Substance: POTASSIUM CHLORIDE
     Dosage: 10%, 10 ML/CC, ONCE
     Route: 041
     Dates: start: 20150728, end: 20150728
  19. PANTOPRAZOLE SODIUM. [Concomitant]
     Active Substance: PANTOPRAZOLE SODIUM
     Indication: PROPHYLAXIS
     Dosage: 40 MG, QD
     Route: 041
     Dates: start: 20150730, end: 20150801
  20. PALONOSETRON HYDROCHLORIDE. [Concomitant]
     Active Substance: PALONOSETRON HYDROCHLORIDE
     Indication: PROPHYLAXIS OF NAUSEA AND VOMITING
     Dosage: 0.25 MG, QD
     Route: 041
     Dates: start: 20150730, end: 20150801
  21. DIISOPROPYLAMINE DICHLOROACETATE [Concomitant]
     Indication: PROPHYLAXIS
     Dosage: 160 MG, QD
     Route: 041
     Dates: start: 20150730, end: 20150801
  22. EMEND [Suspect]
     Active Substance: APREPITANT
     Indication: PROPHYLAXIS OF NAUSEA AND VOMITING
     Dosage: 125 MG, ONCE, DAY 1
     Route: 048
     Dates: start: 20150730, end: 20150730
  23. CISPLATIN. [Concomitant]
     Active Substance: CISPLATIN
     Indication: CHEMOTHERAPY
     Dosage: 126 MG, ONCE, TREATMENT CYCLE I, TREATMENT REGIMEN: PP
     Route: 041
     Dates: start: 20150730, end: 20150730
  24. PEMETREXED DISODIUM [Concomitant]
     Active Substance: PEMETREXED DISODIUM
     Indication: CHEMOTHERAPY
     Dosage: 0.8 G, ONCE, TREATMENT CYCLE I, TREATMENT REGIMEN PP
     Route: 041
     Dates: start: 20150730, end: 20150730
  25. EMEND [Suspect]
     Active Substance: APREPITANT
     Dosage: 80 MG, ONCE, DAY 2 AND 3
     Route: 048
     Dates: start: 20150731, end: 20150801
  26. CALCIUM CARBONATE (+) DEXTROSE (+) MAGNESIUM OXIDE (+) POTASSIUM CHLOR [Concomitant]
     Indication: BLOOD ELECTROLYTES ABNORMAL
     Dosage: 500 ML/CC, QD
     Route: 041
     Dates: start: 20150725, end: 20150726
  27. SODIUM DEOXYRIBONUCLEATE [Concomitant]
     Indication: PROPHYLAXIS
     Dosage: 150 MG, QD
     Route: 041
     Dates: start: 20150730, end: 20150801

REACTIONS (3)
  - Bone marrow failure [Not Recovered/Not Resolved]
  - Cerebral infarction [Fatal]
  - Arrhythmia [Recovered/Resolved]

NARRATIVE: CASE EVENT DATE: 20150809
